FAERS Safety Report 17524742 (Version 3)
Quarter: 2021Q2

REPORT INFORMATION
  Report Type: Other
  Country: DE (occurrence: DE)
  Receive Date: 20200311
  Receipt Date: 20210422
  Transmission Date: 20210716
  Serious: Yes (Other)
  Sender: FDA-Public Use
  Company Number: DE-ROCHE-2243571

PATIENT
  Age: 48 Year
  Sex: Female

DRUGS (12)
  1. OCREVUS [Suspect]
     Active Substance: OCRELIZUMAB
     Route: 042
     Dates: start: 20200225
  2. OCREVUS [Suspect]
     Active Substance: OCRELIZUMAB
     Route: 042
     Dates: start: 20210223
  3. DEKRISTOL [Concomitant]
     Active Substance: CHOLECALCIFEROL
  4. OCREVUS [Suspect]
     Active Substance: OCRELIZUMAB
     Route: 042
     Dates: start: 20190826
  5. OCREVUS [Suspect]
     Active Substance: OCRELIZUMAB
     Indication: RELAPSING-REMITTING MULTIPLE SCLEROSIS
     Route: 042
     Dates: start: 20180827
  6. DEKRISTOL [Concomitant]
     Active Substance: CHOLECALCIFEROL
  7. CETIRIZIN [Concomitant]
     Active Substance: CETIRIZINE HYDROCHLORIDE
  8. OCREVUS [Suspect]
     Active Substance: OCRELIZUMAB
     Route: 042
     Dates: start: 20200825
  9. AMANTADIN [Concomitant]
     Active Substance: AMANTADINE
  10. DEKRISTOL [Concomitant]
     Active Substance: CHOLECALCIFEROL
  11. L?THYROXIN [Concomitant]
     Active Substance: LEVOTHYROXINE SODIUM
  12. AMANTADIN [Concomitant]
     Active Substance: AMANTADINE

REACTIONS (12)
  - Headache [Recovered/Resolved]
  - Nausea [Recovered/Resolved]
  - Infusion related reaction [Recovered/Resolved]
  - Pain in extremity [Recovered/Resolved]
  - Arthralgia [Recovering/Resolving]
  - Fatigue [Recovered/Resolved]
  - Cough [Not Recovered/Not Resolved]
  - Eye swelling [Recovered/Resolved]
  - Cognitive disorder [Not Recovered/Not Resolved]
  - Drug ineffective [Unknown]
  - Skin reaction [Recovered/Resolved]
  - Multiple sclerosis [Recovered/Resolved]

NARRATIVE: CASE EVENT DATE: 20180827
